FAERS Safety Report 16059939 (Version 2)
Quarter: 2019Q1

REPORT INFORMATION
  Report Type: Spontaneous
  Country: GB (occurrence: GB)
  Receive Date: 20190312
  Receipt Date: 20190329
  Transmission Date: 20190418
  Serious: Yes (Other)
  Sender: FDA-Public Use
  Company Number: GB-CONCORDIA PHARMACEUTICALS INC.-E2B_00018868

PATIENT
  Age: 67 Year
  Sex: Female
  Weight: 64.9 kg

DRUGS (2)
  1. PREDNISOLONE. [Suspect]
     Active Substance: PREDNISOLONE
     Dosage: 5 DAY COURSE.
  2. VENTOLIN [Concomitant]
     Active Substance: ALBUTEROL SULFATE
     Dosage: 100 MICROGRAM, 1 TO 2 PUFFS UP TO FOUR TIMES DAILY
     Route: 055
     Dates: start: 20190107

REACTIONS (1)
  - Suicidal ideation [Recovered/Resolved]
